FAERS Safety Report 4742332-3 (Version None)
Quarter: 2005Q3

REPORT INFORMATION
  Report Type: 
  Country: None (occurrence: None)
  Receive Date: 20050811
  Receipt Date: 20050407
  Transmission Date: 20060218
  Serious: No
  Sender: FDA-Public Use
  Company Number: US-GLAXOSMITHKLINE-A0553211A

PATIENT
  Age: 67 Year
  Sex: Female

DRUGS (6)
  1. PAXIL CR [Suspect]
     Indication: PANIC DISORDER
     Dosage: 25MG PER DAY
     Route: 048
     Dates: start: 20040901
  2. SYNTHROID [Concomitant]
  3. ALTACE [Concomitant]
  4. LIPITOR [Concomitant]
  5. LEVAQUIN [Concomitant]
  6. DIAZEPAM [Concomitant]

REACTIONS (1)
  - SOMNOLENCE [None]
